FAERS Safety Report 24862266 (Version 1)
Quarter: 2025Q1

REPORT INFORMATION
  Report Type: Spontaneous
  Country: US (occurrence: US)
  Receive Date: 20250120
  Receipt Date: 20250120
  Transmission Date: 20250408
  Serious: Yes (Death, Other)
  Sender: AMGEN
  Company Number: US-AMGEN-USASP2025009871

PATIENT

DRUGS (2)
  1. PREDNISONE [Suspect]
     Active Substance: PREDNISONE
     Indication: Interstitial lung disease
     Route: 048
  2. HUMAN IMMUNOGLOBULIN G [Concomitant]
     Active Substance: HUMAN IMMUNOGLOBULIN G
     Indication: Interstitial lung disease
     Dosage: 400 MILLIGRAM/KILOGRAM, QD
     Route: 040

REACTIONS (7)
  - Death [Fatal]
  - Pulmonary embolism [Unknown]
  - Neoplasm malignant [Unknown]
  - Endometrial cancer [Unknown]
  - Dyspnoea [Unknown]
  - Headache [Unknown]
  - Off label use [Unknown]
